FAERS Safety Report 5682353-X (Version None)
Quarter: 2008Q1

REPORT INFORMATION
  Report Type: 
  Country: None (occurrence: None)
  Receive Date: 20080327
  Receipt Date: 20080317
  Transmission Date: 20080703
  Serious: Yes (Death, Other)
  Sender: FDA-Public Use
  Company Number: GB-AVENTIS-200721396GDDC

PATIENT
  Age: 49 Year
  Sex: Female
  Weight: 73 kg

DRUGS (7)
  1. TAXOTERE [Suspect]
     Route: 042
     Dates: start: 20071120, end: 20071120
  2. FLUOROURACIL [Concomitant]
  3. EPIRUBICIN [Concomitant]
  4. CYCLOPHOSPHAMIDE [Concomitant]
  5. DEXAMETHASONE TAB [Concomitant]
  6. DOMPERIDONE [Concomitant]
  7. GRANISETRON [Concomitant]

REACTIONS (2)
  - INTESTINAL ISCHAEMIA [None]
  - SPLENIC INFARCTION [None]
